FAERS Safety Report 5633096-X (Version None)
Quarter: 2008Q1

REPORT INFORMATION
  Report Type: 
  Country: None (occurrence: None)
  Receive Date: 20080215
  Receipt Date: 20080204
  Transmission Date: 20080703
  Serious: Yes (Other)
  Sender: FDA-Public Use
  Company Number: 2008S1001786

PATIENT

DRUGS (1)
  1. ACYCLOVIR [Suspect]
     Indication: HERPES VIRUS INFECTION

REACTIONS (1)
  - NECROTISING COLITIS [None]
